FAERS Safety Report 5834952-X (Version None)
Quarter: 2008Q3

REPORT INFORMATION
  Report Type: 
  Country: None (occurrence: None)
  Receive Date: 20080806
  Receipt Date: 20080723
  Transmission Date: 20090109
  Serious: Yes (Hospitalization)
  Sender: FDA-Public Use
  Company Number: DE-JNJFOC-20080705923

PATIENT
  Weight: 90 kg

DRUGS (1)
  1. IONSYS [Suspect]
     Indication: PAIN
     Route: 044

REACTIONS (1)
  - DISORIENTATION [None]
